FAERS Safety Report 18512688 (Version 1)
Quarter: 2020Q4

REPORT INFORMATION
  Report Type: Spontaneous
  Country: US (occurrence: US)
  Receive Date: 20201117
  Receipt Date: 20201117
  Transmission Date: 20210114
  Serious: Yes (Other)
  Sender: FDA-Public Use
  Company Number: US-TEVA-2020-US-1848358

PATIENT
  Age: 84 Year
  Sex: Female

DRUGS (1)
  1. ENOXAPARIN SODIUM TEVA [Suspect]
     Active Substance: ENOXAPARIN SODIUM
     Route: 065
     Dates: start: 2020

REACTIONS (4)
  - Injection site swelling [Not Recovered/Not Resolved]
  - Injection site haematoma [Not Recovered/Not Resolved]
  - Injection site pain [Not Recovered/Not Resolved]
  - Injection site thrombosis [Unknown]

NARRATIVE: CASE EVENT DATE: 2020
